FAERS Safety Report 7494950 (Version 2)
Quarter: 2013Q1

REPORT INFORMATION
  Report Type: Spontaneous
  Country: US (occurrence: None)
  Receive Date: 20100706
  Receipt Date: 20121017
  Transmission Date: 20140127
  Serious: Yes (Disabling, Other)
  Sender: FDA-Public Use
  Company Number: 2010MA000219

PATIENT
  Sex: Male

DRUGS (14)
  1. METOCLOPRAMIDE [Suspect]
     Indication: GASTROOESOPHAGEAL REFLUX DISEASE
     Dosage: PO
     Route: 048
     Dates: start: 20020105, end: 200903
  2. GLUCOTROL [Concomitant]
  3. LEVOXYL [Concomitant]
  4. DOXAZONSIN [Concomitant]
  5. OXAZEPAM [Concomitant]
  6. HYDROCODONE/APAP [Concomitant]
  7. LABETALOL [Concomitant]
  8. LISINOPRIL [Concomitant]
  9. WARFARIN [Concomitant]
  10. GLIPIZIDE [Concomitant]
  11. CEPHALEXIN [Concomitant]
  12. LEVOTHYROXINE [Concomitant]
  13. METFORMIN [Concomitant]
  14. METOPROLOL [Concomitant]

REACTIONS (11)
  - Injury [None]
  - Intentional drug misuse [None]
  - Accidental exposure to product [None]
  - Nervous system disorder [None]
  - Extrapyramidal disorder [None]
  - Movement disorder [None]
  - Economic problem [None]
  - Activities of daily living impaired [None]
  - Deformity [None]
  - Mental disorder [None]
  - Pain [None]
